FAERS Safety Report 21683948 (Version 3)
Quarter: 2023Q1

REPORT INFORMATION
  Report Type: Report from Study
  Country: US (occurrence: US)
  Receive Date: 20221205
  Receipt Date: 20230127
  Transmission Date: 20230417
  Serious: Yes (Death, Hospitalization)
  Sender: FDA-Public Use
  Company Number: US-GILEAD-2022-0600400

PATIENT
  Age: 76 Year
  Sex: Male
  Weight: 74 kg

DRUGS (43)
  1. AXICABTAGENE CILOLEUCEL [Suspect]
     Active Substance: AXICABTAGENE CILOLEUCEL
     Indication: B-cell lymphoma
     Dosage: 68.00
     Route: 042
     Dates: start: 20220926, end: 20220926
  2. CYCLOPHOSPHAMIDE [Suspect]
     Active Substance: CYCLOPHOSPHAMIDE
     Indication: Bone marrow conditioning regimen
     Dosage: 500
     Route: 065
     Dates: start: 20220921, end: 20220923
  3. CYCLOPHOSPHAMIDE [Suspect]
     Active Substance: CYCLOPHOSPHAMIDE
     Dosage: 500
     Route: 065
     Dates: start: 20220921, end: 20220921
  4. CYCLOPHOSPHAMIDE [Suspect]
     Active Substance: CYCLOPHOSPHAMIDE
     Dosage: 500
     Route: 065
     Dates: start: 20220922, end: 20220922
  5. CYCLOPHOSPHAMIDE [Suspect]
     Active Substance: CYCLOPHOSPHAMIDE
     Dosage: 500
     Route: 065
     Dates: start: 20220923, end: 20220923
  6. FLUDARABINE [Suspect]
     Active Substance: FLUDARABINE PHOSPHATE
     Indication: Bone marrow conditioning regimen
     Dosage: 30
     Route: 065
     Dates: start: 20220921, end: 20220923
  7. FLUDARABINE [Suspect]
     Active Substance: FLUDARABINE PHOSPHATE
     Dosage: 30
     Route: 065
     Dates: start: 20220921, end: 20220921
  8. FLUDARABINE [Suspect]
     Active Substance: FLUDARABINE PHOSPHATE
     Dosage: 30
     Route: 065
     Dates: start: 20220922, end: 20220922
  9. FLUDARABINE [Suspect]
     Active Substance: FLUDARABINE PHOSPHATE
     Dosage: 30
     Route: 065
     Dates: start: 20220923, end: 20220923
  10. MINERALS\VITAMINS [Concomitant]
     Active Substance: MINERALS\VITAMINS
     Dosage: ,,DAILY
     Route: 048
     Dates: start: 2010
  11. VITAMIN D3 [Concomitant]
     Active Substance: CHOLECALCIFEROL
     Dosage: 1000,OTHER,DAILY
     Route: 048
     Dates: start: 2010
  12. VITAMIN D3 [Concomitant]
     Active Substance: CHOLECALCIFEROL
     Dosage: 1000,OTHER,DAILY
     Route: 048
     Dates: start: 2010, end: 20221119
  13. ASPIRIN [Concomitant]
     Active Substance: ASPIRIN
     Dosage: 81,MG,DAILY
     Route: 048
     Dates: start: 20170301
  14. ATORVASTATIN [Concomitant]
     Active Substance: ATORVASTATIN
     Dosage: 40,MG,DAILY
     Route: 048
     Dates: start: 2020
  15. ATORVASTATIN [Concomitant]
     Active Substance: ATORVASTATIN
     Dosage: 40,MG,DAILY
     Route: 048
     Dates: start: 2020, end: 20221119
  16. TRAMADOL [Concomitant]
     Active Substance: TRAMADOL
     Dosage: 50,MG,AS NECESSARY
     Route: 048
     Dates: start: 202110
  17. TRAMADOL [Concomitant]
     Active Substance: TRAMADOL
     Dosage: 50,MG,AS NECESSARY
     Route: 048
     Dates: start: 202110, end: 20221119
  18. METOPROLOL TARTRATE [Concomitant]
     Active Substance: METOPROLOL TARTRATE
     Dosage: 25,MG,DAILY
     Route: 048
     Dates: start: 202202
  19. METOPROLOL TARTRATE [Concomitant]
     Active Substance: METOPROLOL TARTRATE
     Dosage: 25,MG,DAILY
     Route: 048
     Dates: start: 202202, end: 20221119
  20. ESCITALOPRAM [Concomitant]
     Active Substance: ESCITALOPRAM OXALATE
     Dosage: 10,MG,DAILY
     Route: 048
     Dates: start: 202202
  21. ESCITALOPRAM [Concomitant]
     Active Substance: ESCITALOPRAM OXALATE
     Dosage: 10,MG,DAILY
     Route: 048
     Dates: start: 202202, end: 20221119
  22. LORAZEPAM [Concomitant]
     Active Substance: LORAZEPAM
     Dosage: 0.5,MG,TWICE DAILY
     Route: 048
     Dates: start: 20220504
  23. LORAZEPAM [Concomitant]
     Active Substance: LORAZEPAM
     Dosage: 0.5,MG,TWICE DAILY
     Route: 048
     Dates: start: 20220504, end: 20221119
  24. ACYCLOVIR [Concomitant]
     Active Substance: ACYCLOVIR
     Dosage: 400,MG,TWICE DAILY
     Route: 048
     Dates: start: 20220706
  25. ACYCLOVIR [Concomitant]
     Active Substance: ACYCLOVIR
     Dosage: 800,MG,TWICE DAILY
     Route: 048
     Dates: start: 20221002
  26. MEGESTROL [Concomitant]
     Active Substance: MEGESTROL
     Dosage: 400,MG,TWICE DAILY
     Route: 048
     Dates: start: 20220815
  27. MEGESTROL [Concomitant]
     Active Substance: MEGESTROL
     Dosage: 400,MG,TWICE DAILY
     Route: 048
     Dates: start: 20220815, end: 20221119
  28. ASPIRIN [Concomitant]
     Active Substance: ASPIRIN
     Dosage: 81,MG,DAILY
     Route: 048
     Dates: start: 20170301
  29. FLUCONAZOLE [Concomitant]
     Active Substance: FLUCONAZOLE
     Dosage: 400,MG,DAILY
     Route: 048
     Dates: start: 20221002
  30. FLUCONAZOLE [Concomitant]
     Active Substance: FLUCONAZOLE
     Dosage: 400,MG,DAILY
     Route: 048
     Dates: start: 20221002, end: 20221119
  31. BACTRIM [Concomitant]
     Active Substance: SULFAMETHOXAZOLE\TRIMETHOPRIM
     Dosage: 400,MG,DAILY
     Route: 048
     Dates: start: 20221002
  32. BACTRIM [Concomitant]
     Active Substance: SULFAMETHOXAZOLE\TRIMETHOPRIM
     Dosage: 400,MG,DAILY
     Route: 048
     Dates: start: 20221002, end: 20221119
  33. METHYLPREDNISOLONE [Concomitant]
     Active Substance: METHYLPREDNISOLONE
     Dosage: 500,MG,TWICE DAILY
     Route: 048
     Dates: start: 20221002, end: 20221004
  34. METHYLPREDNISOLONE [Concomitant]
     Active Substance: METHYLPREDNISOLONE
     Dosage: 250,MG,TWICE DAILY
     Route: 048
     Dates: start: 20221005, end: 20221006
  35. METHYLPREDNISOLONE [Concomitant]
     Active Substance: METHYLPREDNISOLONE
     Dosage: 125,MG,TWICE DAILY
     Route: 048
     Dates: start: 20221007, end: 20221008
  36. METHYLPREDNISOLONE [Concomitant]
     Active Substance: METHYLPREDNISOLONE
     Dosage: 60,MG,TWICE DAILY
     Route: 048
     Dates: start: 20221009, end: 20221010
  37. PEPCID [Concomitant]
     Active Substance: FAMOTIDINE
     Dosage: 20,MG,TWICE DAILY
     Route: 048
     Dates: start: 20221011, end: 20221119
  38. HUMAN RED BLOOD CELL [Concomitant]
     Active Substance: HUMAN RED BLOOD CELL
     Dosage: 500,ML,ONCE
     Route: 042
     Dates: start: 20220927, end: 20220927
  39. SODIUM CHLORIDE [Concomitant]
     Active Substance: SODIUM CHLORIDE
     Dosage: 1,L,ONCE
     Route: 042
     Dates: start: 20220929, end: 20220929
  40. CEFEPIME [Concomitant]
     Active Substance: CEFEPIME HYDROCHLORIDE
     Dosage: 2000,MG,THREE TIMES DAILY
     Route: 042
     Dates: start: 20220930, end: 20221004
  41. ACETAMINOPHEN [Concomitant]
     Active Substance: ACETAMINOPHEN
     Dosage: 650,MG,ONCE
     Route: 048
     Dates: start: 20220930, end: 20220930
  42. KEPPRA [Concomitant]
     Active Substance: LEVETIRACETAM
     Dosage: 250,MG,TWICE DAILY
     Route: 048
     Dates: start: 20221002, end: 20221002
  43. THIAMINE [Concomitant]
     Active Substance: THIAMINE
     Dosage: 100,MG,DAILY
     Route: 042
     Dates: start: 20221003, end: 20221005

REACTIONS (6)
  - B-cell lymphoma [Fatal]
  - Failure to thrive [Recovered/Resolved]
  - Cytokine release syndrome [Recovered/Resolved]
  - Pyrexia [Recovered/Resolved]
  - Clostridium bacteraemia [Recovered/Resolved]
  - Neurotoxicity [Recovered/Resolved]

NARRATIVE: CASE EVENT DATE: 20220929
